FAERS Safety Report 5546048-5 (Version None)
Quarter: 2007Q4

REPORT INFORMATION
  Report Type: 
  Country: None (occurrence: None)
  Receive Date: 20071211
  Receipt Date: 20070926
  Transmission Date: 20080405
  Serious: No
  Sender: FDA-Public Use
  Company Number: US-BRISTOL-MYERS SQUIBB COMPANY-13897293

PATIENT
  Age: 56 Year
  Sex: Female

DRUGS (4)
  1. EMSAM [Suspect]
     Indication: DEPRESSION
     Dosage: THERAPY DURATION : 3 1/2 MONTHS
     Route: 062
     Dates: start: 20070528
  2. SINGULAIR [Concomitant]
  3. THEOPHYLLINE [Concomitant]
  4. TRAZODONE HCL [Concomitant]

REACTIONS (1)
  - BLOOD PRESSURE INCREASED [None]
